FAERS Safety Report 5203911-2 (Version None)
Quarter: 2006Q4

REPORT INFORMATION
  Report Type: 
  Country: None (occurrence: None)
  Receive Date: 20061027
  Receipt Date: 20060814
  Transmission Date: 20070319
  Serious: Yes (Hospitalization, Other)
  Sender: FDA-Public Use
  Company Number: HQWYE524115AUG06

PATIENT
  Sex: Female

DRUGS (5)
  1. PREMARIN [Suspect]
  2. ACTIVELLA [Suspect]
  3. CYCRIN [Suspect]
  4. MEDROXYPROGESTERONE [Suspect]
  5. PROVERA [Suspect]

REACTIONS (1)
  - BREAST CANCER [None]
